FAERS Safety Report 8191964-1 (Version None)
Quarter: 2012Q1

REPORT INFORMATION
  Report Type: 
  Country: None (occurrence: None)
  Receive Date: 20120307
  Receipt Date: 20120302
  Transmission Date: 20120608
  Serious: Yes (Hospitalization, Other)
  Sender: FDA-Public Use
  Company Number: PHHY2012JP006891

PATIENT
  Sex: Female

DRUGS (7)
  1. CLARITHROMYCIN [Concomitant]
     Dosage: 400 MG, UNK
     Route: 048
     Dates: start: 20100618, end: 20110531
  2. OXYCONTIN [Concomitant]
     Indication: PAIN
     Dosage: 40 MG, UNK
     Dates: start: 20110601
  3. CELECOXIB [Concomitant]
     Indication: PAIN
     Dosage: 200 MG, UNK
     Dates: start: 20110601, end: 20110720
  4. LOXONIN [Concomitant]
     Indication: PAIN
     Dosage: 180 MG, UNK
     Dates: start: 20110720
  5. OXYCONTIN [Concomitant]
     Dosage: 30 MG, UNK
     Dates: start: 20110601
  6. ZOLEDRONIC ACID [Suspect]
     Indication: METASTASES TO BONE
     Dosage: 4 MG, UNK
     Route: 041
     Dates: start: 20080301, end: 20100701
  7. LANSOPRAZOLE [Concomitant]
     Indication: GASTRIC ULCER
     Dosage: 30 MG, UNK
     Dates: start: 20110720

REACTIONS (18)
  - SOFT TISSUE INFECTION [None]
  - TOOTHACHE [None]
  - OSTEONECROSIS OF JAW [None]
  - PURULENT DISCHARGE [None]
  - FISTULA [None]
  - LYMPH NODE PAIN [None]
  - TRISMUS [None]
  - PAIN IN JAW [None]
  - OSTEOMYELITIS [None]
  - IMPAIRED HEALING [None]
  - CELLULITIS [None]
  - GINGIVAL ERYTHEMA [None]
  - GINGIVAL INFECTION [None]
  - ORAL PAIN [None]
  - GINGIVAL SWELLING [None]
  - EXPOSED BONE IN JAW [None]
  - HYPOPHAGIA [None]
  - PULPITIS DENTAL [None]
